FAERS Safety Report 5348547-8 (Version None)
Quarter: 2007Q2

REPORT INFORMATION
  Report Type: 
  Country: None (occurrence: None)
  Receive Date: 20070605
  Receipt Date: 20070521
  Transmission Date: 20071010
  Serious: Yes (Hospitalization, Other)
  Sender: FDA-Public Use
  Company Number: 100#08#2007-01751

PATIENT
  Age: 43 Year
  Sex: Male

DRUGS (9)
  1. DOXORUBICIN HCL [Suspect]
     Indication: BURKITT'S LYMPHOMA
     Dosage: 6 CYCLES-APP 5 MONTHS
     Dates: start: 19980401, end: 19980901
  2. METHOTREXATE [Suspect]
     Indication: BURKITT'S LYMPHOMA
     Dosage: INTRATHECAL
     Route: 039
     Dates: start: 19980401, end: 19980901
  3. CYCLOPHOSPHAMIDE [Suspect]
     Indication: BURKITT'S LYMPHOMA
     Dosage: 6 CYCLES-APP. 5 MONTH
     Dates: start: 19980401, end: 19980901
  4. VINCRISTINE [Suspect]
     Indication: BURKITT'S LYMPHOMA
     Dosage: 6 CYCLES-APP. 5 MONTHS
     Dates: start: 19980401, end: 19990901
  5. PREDNISOLONE [Suspect]
     Indication: BURKITT'S LYMPHOMA
     Dosage: TOTAL DOSE 2.35 G PVER 3.5 MONTHS
     Dates: start: 19980401, end: 19980901
  6. HYDROXYCORTISONE [Suspect]
     Indication: BURKITT'S LYMPHOMA
     Dates: start: 19980401, end: 19980901
  7. CYTARABINE [Suspect]
     Indication: BURKITT'S LYMPHOMA
     Dates: start: 19980401, end: 19980901
  8. RITONAVIR [Suspect]
     Indication: HIV INFECTION
     Dosage: 400 MG TWICE DAILY
  9. SAQUINAVIR [Suspect]
     Indication: HIV INFECTION
     Dosage: 400 MG TWICE DAILY

REACTIONS (8)
  - BLOOD CHOLESTEROL INCREASED [None]
  - BLOOD TRIGLYCERIDES INCREASED [None]
  - MULTIPLE FRACTURES [None]
  - OSTEONECROSIS [None]
  - OSTEOPOROSIS [None]
  - PATHOLOGICAL FRACTURE [None]
  - SPINAL COMPRESSION FRACTURE [None]
  - TREATMENT NONCOMPLIANCE [None]
